FAERS Safety Report 25167722 (Version 1)
Quarter: 2025Q2

REPORT INFORMATION
  Report Type: Spontaneous
  Country: HR (occurrence: None)
  Receive Date: 20250407
  Receipt Date: 20250407
  Transmission Date: 20250716
  Serious: Yes (Other)
  Sender: INCYTE
  Company Number: HR-002147023-NVSC2025HR052465

PATIENT

DRUGS (1)
  1. RUXOLITINIB [Suspect]
     Active Substance: RUXOLITINIB
     Indication: Polycythaemia vera
     Dosage: 10 MG, BID
     Route: 065

REACTIONS (2)
  - Ophthalmic herpes zoster [Unknown]
  - Wrong technique in product usage process [Unknown]
